FAERS Safety Report 7518242-5 (Version None)
Quarter: 2011Q2

REPORT INFORMATION
  Report Type: 
  Country: None (occurrence: None)
  Receive Date: 20110523
  Receipt Date: 20110509
  Transmission Date: 20111010
  Serious: Yes (Hospitalization, Other)
  Sender: FDA-Public Use
  Company Number: 2011P1006443

PATIENT
  Age: 10 Year
  Sex: Female

DRUGS (12)
  1. CYCLOPHOSPHAMIDE [Concomitant]
  2. MERCAPTOPURINE [Concomitant]
  3. PREDNISONE [Suspect]
     Indication: ACUTE LYMPHOCYTIC LEUKAEMIA
  4. VINCRISTINE [Concomitant]
  5. DAUNORUBICIN HCL [Concomitant]
  6. L-ASPARAGINASE (NO PREF. NAME) [Suspect]
     Indication: B-CELL TYPE ACUTE LEUKAEMIA
     Dosage: 10,000 IU/M^2; QD; IM, 10,000 IU/M^2; QDX10; IM
     Route: 030
  7. METHOTREXATE [Concomitant]
  8. CYTARABINE [Concomitant]
  9. DEXAMETHASONE [Suspect]
     Indication: ACUTE LYMPHOCYTIC LEUKAEMIA
     Dosage: 8 MG/M^2; QD; PO, QD; PO
     Route: 048
  10. DEXAMETHASONE [Suspect]
     Indication: ACUTE LYMPHOCYTIC LEUKAEMIA
     Dosage: 8 MG/M^2; QD; PO, QD; PO
     Route: 048
  11. EPIRUBICIN [Concomitant]
  12. HYDROCORTISONE [Suspect]
     Indication: ACUTE LYMPHOCYTIC LEUKAEMIA
     Dosage: 30 MG; QDX3; INTH
     Route: 037

REACTIONS (17)
  - PALLOR [None]
  - HYPERTRIGLYCERIDAEMIA [None]
  - HYPONATRAEMIA [None]
  - MALAISE [None]
  - CUSHINGOID [None]
  - ABDOMINAL TENDERNESS [None]
  - HEADACHE [None]
  - HYPERVISCOSITY SYNDROME [None]
  - ACTIVATED PARTIAL THROMBOPLASTIN TIME PROLONGED [None]
  - DECREASED APPETITE [None]
  - SOMNOLENCE [None]
  - LABORATORY TEST INTERFERENCE [None]
  - BLOOD CHOLESTEROL INCREASED [None]
  - HEPATIC ENZYME INCREASED [None]
  - ASTHENIA [None]
  - ABDOMINAL PAIN [None]
  - OEDEMA PERIPHERAL [None]
